FAERS Safety Report 6121324-6 (Version None)
Quarter: 2009Q1

REPORT INFORMATION
  Report Type: 
  Country: None (occurrence: None)
  Receive Date: 20090312
  Receipt Date: 20090312
  Transmission Date: 20090719
  Serious: Yes (Hospitalization)
  Sender: FDA-Public Use
  Company Number: None

PATIENT
  Sex: Female
  Weight: 77 kg

DRUGS (10)
  1. BACTRIM DS [Suspect]
     Indication: INCISION SITE INFECTION
     Dosage: TWO OF DS -160MG/800MG- TWICE A DAY PO
     Route: 048
     Dates: start: 20090226, end: 20090302
  2. BACTRIM DS [Suspect]
     Indication: STAPHYLOCOCCAL INFECTION
     Dosage: TWO OF DS -160MG/800MG- TWICE A DAY PO
     Route: 048
     Dates: start: 20090226, end: 20090302
  3. ALBUTEROL [Concomitant]
  4. BUPROPION CR [Concomitant]
  5. LOVENOX [Concomitant]
  6. LASIX [Concomitant]
  7. MORPHINE [Concomitant]
  8. NIFEDIPINE [Concomitant]
  9. OXYBUTYNIN CHLORIDE [Concomitant]
  10. MULTI-VITAMIN [Concomitant]

REACTIONS (2)
  - CHOLANGITIS [None]
  - HYPOTENSION [None]
